FAERS Safety Report 6064289-8 (Version None)
Quarter: 2009Q1

REPORT INFORMATION
  Report Type: 
  Country: None (occurrence: None)
  Receive Date: 20090204
  Receipt Date: 20090130
  Transmission Date: 20090719
  Serious: Yes (Life-Threatening)
  Sender: FDA-Public Use
  Company Number: JP-ASTRAZENECA-2009AP00889

PATIENT
  Age: 75 Year
  Sex: Female

DRUGS (7)
  1. IRESSA [Suspect]
     Indication: NON-SMALL CELL LUNG CANCER
     Route: 048
     Dates: start: 20070109, end: 20090129
  2. PL [Suspect]
     Dosage: DOSE UNKNOWN
     Route: 048
     Dates: end: 20090129
  3. TRANSAMIN [Concomitant]
     Dosage: DOSE UNKNOWN
     Route: 048
     Dates: end: 20090129
  4. THYRADIN [Concomitant]
     Dosage: DOSE UNKNOWN
     Route: 048
  5. MAINTATE [Concomitant]
     Dosage: DOSE UNKNOWN
     Route: 048
  6. EVISTA [Concomitant]
     Dosage: DOSE UNKNOWN
     Route: 048
     Dates: end: 20090129
  7. EBASTEL [Concomitant]
     Dosage: DOSE UNKNOWN
     Route: 048
     Dates: end: 20090129

REACTIONS (1)
  - RENAL FAILURE ACUTE [None]
